FAERS Safety Report 4293943-3 (Version None)
Quarter: 2004Q1

REPORT INFORMATION
  Report Type: 
  Country: None (occurrence: None)
  Receive Date: 20040212
  Receipt Date: 20040212
  Transmission Date: 20041129
  Serious: Yes (Disabling)
  Sender: FDA-Public Use
  Company Number: None

PATIENT
  Age: 38 Year
  Sex: Female
  Weight: 63.5036 kg

DRUGS (1)
  1. AVELOX [Suspect]
     Indication: INFECTION PROPHYLAXIS
     Dosage: 400 MG DAY ORAL
     Route: 048
     Dates: start: 20030415, end: 20030417

REACTIONS (2)
  - DIZZINESS [None]
  - NAUSEA [None]
